FAERS Safety Report 11018549 (Version 2)
Quarter: 2015Q2

REPORT INFORMATION
  Report Type: Spontaneous
  Country: US (occurrence: US)
  Receive Date: 20150412
  Receipt Date: 20150524
  Transmission Date: 20150821
  Serious: No
  Sender: FDA-Public Use
  Company Number: US-JNJFOC-20121207917

PATIENT
  Sex: Female

DRUGS (6)
  1. 5-FLUOROURACIL [Suspect]
     Active Substance: FLUOROURACIL
     Indication: BREAST CANCER
     Dosage: RECEIVED FIVE OF SIX PLANNED TREATMENTS
     Route: 065
  2. DOCETAXEL. [Suspect]
     Active Substance: DOCETAXEL
     Indication: BREAST CANCER
     Dosage: 75-100 MG/M2, RECEIVED FIVE OF SIX PLANNED TREATMENTS
     Route: 065
  3. CYCLOPHOSPHAMIDE. [Suspect]
     Active Substance: CYCLOPHOSPHAMIDE
     Indication: BREAST CANCER
     Dosage: RECEIVED FIVE OF SIX PLANNED TREATMENTS
     Route: 065
  4. DACTINOMYCIN [Suspect]
     Active Substance: DACTINOMYCIN
     Indication: BREAST CANCER
     Dosage: RECEIVED FIVE OF SIX PLANNED TREATMENTS
     Route: 065
  5. DOXORUBICIN [Suspect]
     Active Substance: DOXORUBICIN
     Indication: BREAST CANCER
     Dosage: RECEIVED FIVE OF SIX PLANNED TREATMENTS
     Route: 042
  6. PACLITAXEL. [Suspect]
     Active Substance: PACLITAXEL
     Indication: BREAST CANCER
     Dosage: RECEIVED FIVE OF SIX PLANNED TREATMENTS
     Route: 065

REACTIONS (2)
  - Exposure during pregnancy [Unknown]
  - Cardiac disorder [Unknown]
